FAERS Safety Report 25990048 (Version 1)
Quarter: 2025Q4

REPORT INFORMATION
  Report Type: Spontaneous
  Country: US (occurrence: US)
  Receive Date: 20251103
  Receipt Date: 20251103
  Transmission Date: 20260117
  Serious: Yes (Hospitalization, Disabling)
  Sender: PFIZER
  Company Number: US-MLMSERVICE-20251017-PI678387-00079-1

PATIENT
  Age: 29 Year
  Sex: Male

DRUGS (4)
  1. PAXLOVID [Interacting]
     Active Substance: NIRMATRELVIR\RITONAVIR
     Indication: COVID-19 treatment
     Dosage: [NIRMATRELVIR 300 MG]/[RITONAVIR 100 MG]; 2X/DAY
  2. CARBAMAZEPINE [Interacting]
     Active Substance: CARBAMAZEPINE
     Indication: Coffin-Lowry syndrome
     Dosage: 600 MG, 2X/DAY
  3. FLUOXETINE [Interacting]
     Active Substance: FLUOXETINE HYDROCHLORIDE
     Indication: Coffin-Lowry syndrome
     Dosage: 20 MG, 1X/DAY
  4. CLONAZEPAM [Concomitant]
     Active Substance: CLONAZEPAM
     Indication: Coffin-Lowry syndrome
     Dosage: 0.5 MG, 2X/DAY

REACTIONS (5)
  - Contraindicated product administered [Recovering/Resolving]
  - Drug interaction [Recovering/Resolving]
  - Gait disturbance [Recovering/Resolving]
  - Metabolic alkalosis [Recovering/Resolving]
  - Toxicity to various agents [Recovering/Resolving]
